FAERS Safety Report 21769184 (Version 1)
Quarter: 2022Q4

REPORT INFORMATION
  Report Type: Spontaneous
  Country: CA (occurrence: CA)
  Receive Date: 20221222
  Receipt Date: 20221222
  Transmission Date: 20230112
  Serious: Yes (Death)
  Sender: FDA-Public Use
  Company Number: CA-002147023-NVSC2022CA262907

PATIENT
  Sex: Male

DRUGS (6)
  1. LUCENTIS [Suspect]
     Active Substance: RANIBIZUMAB
     Indication: Diabetic retinal oedema
     Dosage: UNK (X20)
     Route: 065
     Dates: start: 202003, end: 202203
  2. AVASTIN [Suspect]
     Active Substance: BEVACIZUMAB
     Indication: Diabetic retinal oedema
     Dosage: UNK (X7)
     Route: 065
     Dates: start: 201811, end: 201905
  3. AVASTIN [Suspect]
     Active Substance: BEVACIZUMAB
     Dosage: X3
     Route: 065
     Dates: start: 20220604
  4. EYLEA [Suspect]
     Active Substance: AFLIBERCEPT
     Indication: Diabetic retinal oedema
     Dosage: UNK (X3)
     Route: 065
     Dates: start: 201703, end: 201810
  5. EYLEA [Suspect]
     Active Substance: AFLIBERCEPT
     Dosage: UNK (X9)
     Route: 065
     Dates: start: 201906, end: 202002
  6. EYLEA [Suspect]
     Active Substance: AFLIBERCEPT
     Route: 065
     Dates: start: 20221108

REACTIONS (4)
  - Death [Fatal]
  - Epiretinal membrane [Unknown]
  - Diabetic retinal oedema [Unknown]
  - Disease progression [Unknown]
